FAERS Safety Report 6382053-7 (Version None)
Quarter: 2009Q3

REPORT INFORMATION
  Report Type: 
  Country: None (occurrence: None)
  Receive Date: 20090930
  Receipt Date: 20090917
  Transmission Date: 20100115
  Serious: Yes (Hospitalization)
  Sender: FDA-Public Use
  Company Number: PHHY2009CZ41205

PATIENT
  Age: 68 Year
  Sex: Female

DRUGS (3)
  1. DICLOFENAC [Suspect]
     Indication: ARTHRALGIA
     Dosage: UPTO 150MG DAILY
  2. IBUPROFEN [Suspect]
     Indication: ARTHRALGIA
     Dosage: 400-800MG
     Dates: start: 19960101
  3. INDOMETHACIN [Suspect]

REACTIONS (18)
  - ABDOMINAL PAIN [None]
  - DIVERTICULUM INTESTINAL [None]
  - DYSPEPSIA [None]
  - FLATULENCE [None]
  - GASTROINTESTINAL DISORDER [None]
  - GASTROINTESTINAL HAEMORRHAGE [None]
  - GASTROINTESTINAL INFLAMMATION [None]
  - GASTROINTESTINAL SOUNDS ABNORMAL [None]
  - ILEAL STENOSIS [None]
  - ILEECTOMY [None]
  - ILEITIS [None]
  - INTESTINAL ANASTOMOSIS [None]
  - INTESTINAL DILATATION [None]
  - INTESTINAL ISCHAEMIA [None]
  - IRON DEFICIENCY ANAEMIA [None]
  - LAPAROTOMY [None]
  - LARGE INTESTINAL ULCER [None]
  - MUCOSAL INFLAMMATION [None]
